FAERS Safety Report 18519417 (Version 1)
Quarter: 2020Q4

REPORT INFORMATION
  Report Type: Spontaneous
  Country: US (occurrence: US)
  Receive Date: 20201118
  Receipt Date: 20201118
  Transmission Date: 20210114
  Serious: No
  Sender: FDA-Public Use
  Company Number: US-FRESENIUS KABI-FK202012080

PATIENT
  Sex: Female
  Weight: 68.7 kg

DRUGS (6)
  1. NALBUPHINE [Concomitant]
     Active Substance: NALBUPHINE
     Route: 065
     Dates: start: 201909, end: 201911
  2. NALBUPHINE [Concomitant]
     Active Substance: NALBUPHINE
     Indication: BACK PAIN
     Route: 065
     Dates: start: 2011, end: 201909
  3. PARACETAMOL/HYDROCODONE BITARTRATE [Suspect]
     Active Substance: ACETAMINOPHEN\HYDROCODONE BITARTRATE
     Indication: MIGRAINE
     Dosage: UNKNOWN
     Route: 065
  4. DILAUDID [Suspect]
     Active Substance: HYDROMORPHONE HYDROCHLORIDE
     Indication: MIGRAINE
     Dosage: UNKNOWN
     Route: 065
  5. OXYCODONE [Suspect]
     Active Substance: OXYCODONE
     Indication: MIGRAINE
     Dosage: UNKNOWN
     Route: 065
  6. NALBUPHINE [Concomitant]
     Active Substance: NALBUPHINE
     Indication: MIGRAINE
     Dosage: UNKNOWN
     Route: 065
     Dates: start: 1995, end: 2011

REACTIONS (1)
  - Drug ineffective [Unknown]
